FAERS Safety Report 6245262-3 (Version None)
Quarter: 2009Q2

REPORT INFORMATION
  Report Type: 
  Country: None (occurrence: None)
  Receive Date: 20090619
  Receipt Date: 20090416
  Transmission Date: 20091009
  Serious: No
  Sender: FDA-Public Use
  Company Number: ALL1-2009-01015

PATIENT
  Age: 6 Year
  Sex: Female
  Weight: 19 kg

DRUGS (2)
  1. VYVANSE [Suspect]
     Indication: ATTENTION DEFICIT/HYPERACTIVITY DISORDER
     Dosage: 20 MG, 1X/DAY:QD, ORAL
     Route: 048
     Dates: start: 20090201
  2. SINGULAIR /01362601/ (MONTELUKAST) [Concomitant]

REACTIONS (5)
  - ANOREXIA [None]
  - FLAT AFFECT [None]
  - FOOD CRAVING [None]
  - MEMORY IMPAIRMENT [None]
  - WEIGHT INCREASED [None]
